FAERS Safety Report 5393566-9 (Version None)
Quarter: 2007Q3

REPORT INFORMATION
  Report Type: 
  Country: None (occurrence: None)
  Receive Date: 20070723
  Receipt Date: 20060908
  Transmission Date: 20080115
  Serious: No
  Sender: FDA-Public Use
  Company Number: A0617982A

PATIENT
  Sex: Male
  Weight: 100 kg

DRUGS (10)
  1. AVANDIA [Suspect]
     Indication: SARCOMA
     Dosage: 8MG PER DAY
     Route: 048
     Dates: start: 20010301
  2. COLCHICINE [Concomitant]
  3. SIMVASTATIN [Concomitant]
  4. LEVOTHYROXINE SODIUM [Concomitant]
  5. DIOVAN [Concomitant]
  6. FOLIC ACID [Concomitant]
  7. OMEPRAZOLE [Concomitant]
  8. FUROSEMIDE [Concomitant]
  9. WARFARIN SODIUM [Concomitant]
  10. ASPIRIN [Concomitant]

REACTIONS (1)
  - THERAPEUTIC RESPONSE UNEXPECTED [None]
